FAERS Safety Report 24031091 (Version 1)
Quarter: 2024Q2

REPORT INFORMATION
  Report Type: Spontaneous
  Country: GB (occurrence: GB)
  Receive Date: 20240628
  Receipt Date: 20240628
  Transmission Date: 20240716
  Serious: Yes (Other)
  Sender: FDA-Public Use
  Company Number: GB-B.Braun Medical Inc.-2158664

PATIENT
  Age: 74 Year
  Sex: Female
  Weight: 56 kg

DRUGS (2)
  1. METRONIDAZOLE [Suspect]
     Active Substance: METRONIDAZOLE
     Indication: Alveolar osteitis
  2. NYSTATIN [Suspect]
     Active Substance: NYSTATIN

REACTIONS (3)
  - Erythema [Recovering/Resolving]
  - Off label use [Recovering/Resolving]
  - Photosensitivity reaction [Recovering/Resolving]
